FAERS Safety Report 5162702-1 (Version None)
Quarter: 2006Q4

REPORT INFORMATION
  Report Type: 
  Country: None (occurrence: None)
  Receive Date: 20061201
  Receipt Date: 20060622
  Transmission Date: 20070319
  Serious: No
  Sender: FDA-Public Use
  Company Number: US-GLAXOSMITHKLINE-A0610373A

PATIENT
  Age: 63 Year
  Sex: Female

DRUGS (1)
  1. CLAVULOX [Suspect]
     Indication: BRONCHITIS
     Dosage: 3G PER DAY
     Route: 048
     Dates: start: 20060620

REACTIONS (1)
  - DIARRHOEA [None]
